FAERS Safety Report 5186462-3 (Version None)
Quarter: 2006Q4

REPORT INFORMATION
  Report Type: 
  Country: None (occurrence: None)
  Receive Date: 20061213
  Receipt Date: 20061206
  Transmission Date: 20070319
  Serious: Yes (Hospitalization)
  Sender: FDA-Public Use
  Company Number: CAP06000231

PATIENT
  Age: 72 Year
  Sex: Female
  Weight: 53.1 kg

DRUGS (4)
  1. ASACOL [Suspect]
     Indication: CROHN'S DISEASE
     Dosage: 400 MG, 3/DAY, ORAL
     Route: 048
     Dates: start: 19920101
  2. CYANOCOBALAMIN [Concomitant]
  3. ACETYLSALICYLIC ACID ENTERIC COATED (ACETYLSALICYLIC ACID) [Concomitant]
  4. CALCIUM W/VITAMINS D NOS (CALCIUM, VITAMIN D NOS) [Concomitant]

REACTIONS (7)
  - ATRIAL FIBRILLATION [None]
  - CARDIAC FUNCTION DISTURBANCE POSTOPERATIVE [None]
  - CONDITION AGGRAVATED [None]
  - CROHN'S DISEASE [None]
  - LUNG NEOPLASM MALIGNANT [None]
  - MEDICATION RESIDUE [None]
  - POST PROCEDURAL COMPLICATION [None]
